FAERS Safety Report 6986564-2 (Version None)
Quarter: 2010Q3

REPORT INFORMATION
  Report Type: 
  Country: None (occurrence: None)
  Receive Date: 20100827
  Receipt Date: 20100416
  Transmission Date: 20110219
  Serious: Yes (Life-Threatening, Hospitalization)
  Sender: FDA-Public Use
  Company Number: AMAG201000208

PATIENT
  Age: 73 Year
  Sex: Female
  Weight: 51 kg

DRUGS (7)
  1. FERAHEME [Suspect]
     Indication: IRON DEFICIENCY ANAEMIA
     Dosage: 240 MG, SINGLE, INTRAVENOUS
     Route: 042
     Dates: start: 20100409, end: 20100409
  2. AMLODIPINE [Concomitant]
  3. LIPITOR [Concomitant]
  4. CARVEDILOL [Concomitant]
  5. LISINOPRIL (LISINOPRIL DIHYDRATE) [Concomitant]
  6. RENAL (ASORBIC ACID, BIOTIN, CALCIUM PANTOTHENATE, CYANOCOBALAMIN, FOL [Concomitant]
  7. PRILOSEC (OMEPRAZOLE) [Concomitant]

REACTIONS (12)
  - CHEST DISCOMFORT [None]
  - COUGH [None]
  - DYSPHAGIA [None]
  - DYSPNOEA [None]
  - FACE OEDEMA [None]
  - HYPERSENSITIVITY [None]
  - HYPERTENSION [None]
  - LARYNGOSPASM [None]
  - MENTAL STATUS CHANGES [None]
  - PERIORBITAL OEDEMA [None]
  - THROAT IRRITATION [None]
  - WHEEZING [None]
